FAERS Safety Report 7254022-6 (Version None)
Quarter: 2011Q1

REPORT INFORMATION
  Report Type: 
  Country: None (occurrence: None)
  Receive Date: 20110129
  Receipt Date: 20100317
  Transmission Date: 20110831
  Serious: No
  Sender: FDA-Public Use
  Company Number: US-ABBOTT-10P-163-0633596-00

PATIENT
  Age: 39 Year
  Sex: Male

DRUGS (3)
  1. FISH OIL [Concomitant]
     Indication: SUPPLEMENTATION THERAPY
  2. MULTI-VITAMINS [Concomitant]
     Indication: VITAMIN SUPPLEMENTATION
  3. HUMIRA [Suspect]
     Indication: PSORIASIS
     Dates: start: 20070101, end: 20090401

REACTIONS (5)
  - PARAESTHESIA [None]
  - OEDEMA PERIPHERAL [None]
  - PAIN IN EXTREMITY [None]
  - INTERVERTEBRAL DISC PROTRUSION [None]
  - DIZZINESS [None]
